FAERS Safety Report 6639849-3 (Version None)
Quarter: 2010Q1

REPORT INFORMATION
  Report Type: 
  Country: None (occurrence: None)
  Receive Date: 20100318
  Receipt Date: 20100310
  Transmission Date: 20100710
  Serious: Yes (Other)
  Sender: FDA-Public Use
  Company Number: AU-NAPPMUNDI-GBR-2010-0006249

PATIENT
  Age: 39 Year
  Sex: Female

DRUGS (3)
  1. MORPHINE SULFATE [Suspect]
     Indication: ANALGESIC THERAPY
     Dosage: 240 MG, DAILY
     Route: 058
  2. CHLORPROMAZINE [Concomitant]
  3. DIAZEPAM [Concomitant]

REACTIONS (2)
  - HYPOKALAEMIA [None]
  - MYOCLONUS [None]
